FAERS Safety Report 7820523-2 (Version None)
Quarter: 2011Q4

REPORT INFORMATION
  Report Type: 
  Country: None (occurrence: None)
  Receive Date: 20111018
  Receipt Date: 20111005
  Transmission Date: 20120403
  Serious: No
  Sender: FDA-Public Use
  Company Number: US-B.I. PHARMACEUTICALS,INC./RIDGEFIELD-2011-BP-23563BP

PATIENT
  Sex: Female

DRUGS (15)
  1. PROAIR HFA [Concomitant]
     Indication: CHRONIC OBSTRUCTIVE PULMONARY DISEASE
  2. CALCIUM GLUCONATE [Concomitant]
     Indication: OSTEOPOROSIS
  3. SPIRIVA [Suspect]
     Indication: CHRONIC OBSTRUCTIVE PULMONARY DISEASE
     Dosage: 18 MCG
     Route: 055
     Dates: start: 20090101
  4. ACTONEL [Concomitant]
     Indication: OSTEOPOROSIS
  5. SPIRIVA [Suspect]
     Indication: EMPHYSEMA
  6. ALBUTEROL [Concomitant]
     Indication: CHRONIC OBSTRUCTIVE PULMONARY DISEASE
  7. ADVAIR DISKUS 100/50 [Concomitant]
     Indication: CHRONIC OBSTRUCTIVE PULMONARY DISEASE
  8. COUMADIN [Concomitant]
     Indication: CARDIAC DISORDER
  9. OXYGEN [Concomitant]
     Indication: CHRONIC OBSTRUCTIVE PULMONARY DISEASE
  10. OXYGEN [Concomitant]
     Indication: EMPHYSEMA
  11. ALBUTEROL [Concomitant]
     Indication: EMPHYSEMA
  12. ADVAIR DISKUS 100/50 [Concomitant]
     Indication: EMPHYSEMA
  13. PROAIR HFA [Concomitant]
     Indication: EMPHYSEMA
  14. XALATAN [Concomitant]
     Indication: GLAUCOMA
  15. XALATAN [Concomitant]
     Indication: CATARACT

REACTIONS (1)
  - FIBROSIS [None]
